FAERS Safety Report 13018627 (Version 1)
Quarter: 2016Q4

REPORT INFORMATION
  Report Type: Spontaneous
  Country: US (occurrence: US)
  Receive Date: 20161212
  Receipt Date: 20161212
  Transmission Date: 20170207
  Serious: No
  Sender: FDA-Public Use
  Company Number: US-BAYER-2016-234746

PATIENT
  Age: 42 Year
  Sex: Female

DRUGS (2)
  1. MIRENA [Suspect]
     Active Substance: LEVONORGESTREL
     Indication: POSTMENOPAUSAL HAEMORRHAGE
     Dosage: 20 MCG/24HR, CONT
     Route: 015
     Dates: start: 20161116, end: 20161116
  2. MIRENA [Suspect]
     Active Substance: LEVONORGESTREL
     Indication: POSTMENOPAUSAL HAEMORRHAGE
     Dosage: UNK
     Dates: start: 20161116, end: 20161116

REACTIONS (2)
  - Off label use of device [None]
  - Complication of device insertion [Unknown]

NARRATIVE: CASE EVENT DATE: 20161116
